FAERS Safety Report 6434123-2 (Version None)
Quarter: 2009Q4

REPORT INFORMATION
  Report Type: 
  Country: None (occurrence: None)
  Receive Date: 20091110
  Receipt Date: 20090729
  Transmission Date: 20100525
  Serious: No
  Sender: FDA-Public Use
  Company Number: US-ASTRAZENECA-2009SE10385

PATIENT
  Sex: Female

DRUGS (9)
  1. PRILOSEC OTC [Suspect]
     Dosage: NONE
     Route: 048
  2. LIPITOR [Concomitant]
     Dosage: UNKNOWN
  3. TARKA [Concomitant]
     Dosage: UNKNOWN
  4. ZETIA [Concomitant]
     Dosage: UNKNOWN
  5. HYDROCHLOROTHIAZIDE [Concomitant]
     Dosage: UNKNOWN
  6. AZOR [Concomitant]
     Dosage: UNKNOWN
  7. PREDNISONE [Concomitant]
     Dosage: UNKNOWN
  8. ADVAIR DISKUS 100/50 [Concomitant]
     Dosage: UNKNOWN
  9. OXYGEN [Concomitant]
     Dosage: UNKNOWN

REACTIONS (3)
  - INJURY [None]
  - NAIL INJURY [None]
  - SKIN LACERATION [None]
